FAERS Safety Report 17759478 (Version 5)
Quarter: 2021Q2

REPORT INFORMATION
  Report Type: Report from Study
  Country: US (occurrence: US)
  Receive Date: 20200508
  Receipt Date: 20210517
  Transmission Date: 20210716
  Serious: Yes (Death, Hospitalization, Other)
  Sender: FDA-Public Use
  Company Number: US-ACADIA PHARMACEUTICALS INC.-ACA-2020-PIM-000982

PATIENT
  Age: 74 Year
  Sex: Female

DRUGS (1)
  1. NUPLAZID [Suspect]
     Active Substance: PIMAVANSERIN TARTRATE
     Indication: PARKINSON^S DISEASE
     Dosage: 34 MILLIGRAM, QD
     Route: 048
     Dates: start: 20200304

REACTIONS (11)
  - Blood pressure increased [Unknown]
  - Death [Fatal]
  - Oxygen saturation decreased [Unknown]
  - Mental status changes [Unknown]
  - Fall [Unknown]
  - Coronavirus infection [Unknown]
  - Pneumonia [Unknown]
  - Asthenia [Unknown]
  - Memory impairment [Unknown]
  - Myocardial infarction [Unknown]
  - Abnormal behaviour [Unknown]

NARRATIVE: CASE EVENT DATE: 202004
